FAERS Safety Report 17135278 (Version 1)
Quarter: 2019Q4

REPORT INFORMATION
  Report Type: Spontaneous
  Country: UA (occurrence: UA)
  Receive Date: 20191210
  Receipt Date: 20191210
  Transmission Date: 20200122
  Serious: Yes (Other)
  Sender: FDA-Public Use
  Company Number: UA-BAYER-2019-218853

PATIENT
  Age: 38 Year
  Sex: Female

DRUGS (1)
  1. JAYDESS [Suspect]
     Active Substance: LEVONORGESTREL
     Indication: CONTRACEPTION
     Dosage: 14 MCG/24HR, CONT
     Route: 015
     Dates: start: 201907

REACTIONS (7)
  - Ruptured ectopic pregnancy [None]
  - Malaise [None]
  - Drug ineffective [None]
  - Abdominal pain [None]
  - Ectopic pregnancy with contraceptive device [None]
  - Peritoneal haemorrhage [None]
  - Dizziness [None]

NARRATIVE: CASE EVENT DATE: 20191128
